FAERS Safety Report 10216887 (Version 1)
Quarter: 2014Q2

REPORT INFORMATION
  Report Type: Spontaneous
  Country: US (occurrence: US)
  Receive Date: 20140604
  Receipt Date: 20140604
  Transmission Date: 20141212
  Serious: Yes (Death)
  Sender: FDA-Public Use
  Company Number: US-SA-2014SA070182

PATIENT
  Age: 46 Year
  Sex: Male

DRUGS (1)
  1. RENVELA [Suspect]
     Indication: HYPERPHOSPHATAEMIA
     Dosage: 4 TABS TID
     Route: 048
     Dates: start: 201206, end: 20140516

REACTIONS (1)
  - Death [Fatal]
